FAERS Safety Report 7144611-1 (Version None)
Quarter: 2010Q4

REPORT INFORMATION
  Report Type: 
  Country: None (occurrence: None)
  Receive Date: 20101208
  Receipt Date: 20101118
  Transmission Date: 20110411
  Serious: Yes (Other)
  Sender: FDA-Public Use
  Company Number: US-BAYER-201023667BCC

PATIENT

DRUGS (3)
  1. ASP EFF SPARK ORIGINAL COLD [Suspect]
     Indication: NASAL CONGESTION
     Dosage: UNK, PRN
     Route: 048
  2. LEVODOPA [Concomitant]
  3. COMTAN [Concomitant]

REACTIONS (1)
  - PARKINSON'S DISEASE [None]
